FAERS Safety Report 9419614 (Version 1)
Quarter: 2013Q3

REPORT INFORMATION
  Report Type: Spontaneous
  Country: US (occurrence: US)
  Receive Date: 20130725
  Receipt Date: 20130725
  Transmission Date: 20140515
  Serious: Yes (Hospitalization, Other)
  Sender: FDA-Public Use
  Company Number: US-JNJFOC-20130711417

PATIENT
  Sex: Female

DRUGS (3)
  1. REMICADE [Suspect]
     Indication: PRODUCT USED FOR UNKNOWN INDICATION
     Dosage: ABOUT 2 MONTHS AGO
     Route: 042
     Dates: start: 2013, end: 2013
  2. HUMIRA [Suspect]
     Indication: CROHN^S DISEASE
     Dosage: 1 IN 2
     Route: 065
     Dates: start: 201207, end: 201212
  3. ACYCLOVIR [Concomitant]
     Route: 065

REACTIONS (4)
  - Pyoderma gangrenosum [Recovered/Resolved]
  - Hidradenitis [Unknown]
  - Tongue oedema [Unknown]
  - Dyspnoea [Unknown]
